FAERS Safety Report 12631779 (Version 2)
Quarter: 2016Q3

REPORT INFORMATION
  Report Type: Spontaneous
  Country: US (occurrence: US)
  Receive Date: 20160808
  Receipt Date: 20160808
  Transmission Date: 20161109
  Serious: No
  Sender: FDA-Public Use
  Company Number: US-BEH-2016060999

PATIENT
  Sex: Female
  Weight: 54 kg

DRUGS (40)
  1. NASONEX [Concomitant]
     Active Substance: MOMETASONE FUROATE
  2. PROBIOTICA [Concomitant]
     Active Substance: PROBIOTICS NOS
  3. AFRIN [Concomitant]
     Active Substance: OXYMETAZOLINE
  4. RANITIDINE. [Concomitant]
     Active Substance: RANITIDINE
  5. ADVAIR HFA [Concomitant]
     Active Substance: FLUTICASONE PROPIONATE\SALMETEROL XINAFOATE
  6. MUCUS RELIEF D [Concomitant]
     Active Substance: GUAIFENESIN\PSEUDOEPHEDRINE HYDROCHLORIDE
  7. KEFLEX [Concomitant]
     Active Substance: CEPHALEXIN
  8. IMODIUM [Concomitant]
     Active Substance: LOPERAMIDE HYDROCHLORIDE
  9. HIZENTRA [Suspect]
     Active Substance: HUMAN IMMUNOGLOBULIN G
     Indication: IMMUNODEFICIENCY COMMON VARIABLE
     Route: 058
  10. SIMVASTATIN. [Concomitant]
     Active Substance: SIMVASTATIN
  11. AZITHROMYCIN ANHYDROUS. [Concomitant]
     Active Substance: AZITHROMYCIN ANHYDROUS
  12. OMEPRAZOLE. [Concomitant]
     Active Substance: OMEPRAZOLE
  13. ACETAMINOPHEN. [Concomitant]
     Active Substance: ACETAMINOPHEN
  14. PROAIR HFA [Concomitant]
     Active Substance: ALBUTEROL SULFATE
  15. PYRIDIUM [Concomitant]
     Active Substance: PHENAZOPYRIDINE
  16. ZYRTEC-D ALLERGY AND CONGESTION [Concomitant]
     Active Substance: CETIRIZINE HYDROCHLORIDE\PSEUDOEPHEDRINE HYDROCHLORIDE
  17. ATIVAN [Concomitant]
     Active Substance: LORAZEPAM
  18. ALBUTEROL. [Concomitant]
     Active Substance: ALBUTEROL
  19. MONTELUKAST [Concomitant]
     Active Substance: MONTELUKAST SODIUM
  20. AVELOX [Concomitant]
     Active Substance: MOXIFLOXACIN HYDROCHLORIDE
  21. DIFLUCAN [Concomitant]
     Active Substance: FLUCONAZOLE
  22. LORATADINE. [Concomitant]
     Active Substance: LORATADINE
  23. ESTRACE [Concomitant]
     Active Substance: ESTRADIOL
  24. FLONASE [Concomitant]
     Active Substance: FLUTICASONE PROPIONATE
  25. VITAMIN D [Concomitant]
     Active Substance: CHOLECALCIFEROL
  26. DUONEB [Concomitant]
     Active Substance: ALBUTEROL SULFATE\IPRATROPIUM BROMIDE
  27. LIBRAX [Concomitant]
     Active Substance: CHLORDIAZEPOXIDE HYDROCHLORIDE\CLIDINIUM BROMIDE
  28. MULTIVITAMINS [Concomitant]
     Active Substance: VITAMINS
  29. HIZENTRA [Suspect]
     Active Substance: HUMAN IMMUNOGLOBULIN G
     Route: 058
  30. CIPRO [Concomitant]
     Active Substance: CIPROFLOXACIN HYDROCHLORIDE
  31. DIPHENHYDRAMINE. [Concomitant]
     Active Substance: DIPHENHYDRAMINE
  32. EPIPEN [Concomitant]
     Active Substance: EPINEPHRINE
  33. LEVOXYL [Concomitant]
     Active Substance: LEVOTHYROXINE SODIUM
  34. HIZENTRA [Suspect]
     Active Substance: HUMAN IMMUNOGLOBULIN G
     Route: 058
  35. CORTISONE [Concomitant]
     Active Substance: CORTISONE\HYDROCORTISONE
  36. BENZONATATE. [Concomitant]
     Active Substance: BENZONATATE
  37. SIMBRINZA [Concomitant]
     Active Substance: BRIMONIDINE TARTRATE\BRINZOLAMIDE
  38. COLACE [Concomitant]
     Active Substance: DOCUSATE SODIUM
  39. SUCRALFATE. [Concomitant]
     Active Substance: SUCRALFATE
  40. MAGNESIUM [Concomitant]
     Active Substance: MAGNESIUM

REACTIONS (2)
  - Throat irritation [Unknown]
  - Dry throat [Unknown]
